FAERS Safety Report 6059083-8 (Version None)
Quarter: 2009Q1

REPORT INFORMATION
  Report Type: 
  Country: None (occurrence: None)
  Receive Date: 20090130
  Receipt Date: 20090129
  Transmission Date: 20090719
  Serious: Yes (Other)
  Sender: FDA-Public Use
  Company Number: Z0000448B

PATIENT
  Age: 38 Year
  Sex: Female
  Weight: 49 kg

DRUGS (2)
  1. PAZOPANIB [Suspect]
     Dosage: 800MG PER DAY
     Route: 048
     Dates: start: 20080508
  2. LAPATINIB [Suspect]
     Dosage: 1500MG PER DAY
     Route: 048
     Dates: start: 20080508

REACTIONS (1)
  - HEPATOTOXICITY [None]
